FAERS Safety Report 5933388-0 (Version None)
Quarter: 2008Q4

REPORT INFORMATION
  Report Type: 
  Country: None (occurrence: None)
  Receive Date: 20081023
  Receipt Date: 20081013
  Transmission Date: 20090506
  Serious: Yes (Life-Threatening, Hospitalization)
  Sender: FDA-Public Use
  Company Number: 20074451

PATIENT
  Sex: Male

DRUGS (1)
  1. LIORESAL [Suspect]
     Indication: MUSCLE SPASTICITY
     Dosage: MCG, DAILY, INTRATHECAL
     Route: 037

REACTIONS (9)
  - BLOOD PRESSURE INCREASED [None]
  - COGNITIVE DISORDER [None]
  - COMPLICATION OF DEVICE INSERTION [None]
  - HEADACHE [None]
  - HEART RATE INCREASED [None]
  - INTRACRANIAL HYPOTENSION [None]
  - PRURITUS [None]
  - PYREXIA [None]
  - WITHDRAWAL SYNDROME [None]
